FAERS Safety Report 8974144 (Version 1)
Quarter: 2012Q4

REPORT INFORMATION
  Report Type: Spontaneous
  Country: IT (occurrence: None)
  Receive Date: 20121211
  Receipt Date: 20121211
  Transmission Date: 20130627
  Serious: No
  Sender: FDA-Public Use
  Company Number: 1211ITA005360

PATIENT
  Age: 19 Month
  Sex: Male

DRUGS (2)
  1. CEDAX [Suspect]
     Indication: UPPER RESPIRATORY TRACT INFLAMMATION
     Route: 048
     Dates: start: 20121102, end: 20121106
  2. CEDAX [Suspect]
     Indication: UPPER RESPIRATORY TRACT INFLAMMATION

REACTIONS (2)
  - Eyelid oedema [None]
  - Lip oedema [None]
